FAERS Safety Report 23181814 (Version 1)
Quarter: 2023Q4

REPORT INFORMATION
  Report Type: Spontaneous
  Country: IT (occurrence: IT)
  Receive Date: 20231114
  Receipt Date: 20231114
  Transmission Date: 20240110
  Serious: Yes (Other)
  Sender: FDA-Public Use
  Company Number: None

PATIENT
  Sex: Female

DRUGS (3)
  1. PACLITAXEL [Suspect]
     Active Substance: PACLITAXEL
     Indication: Endometrial cancer metastatic
     Dosage: 350 MILLIGRAM (START OF THERAPY 08/09/2023 - II CYCLE - THERAPY EVERY 21 DAYS ? 09/20/23 III CYCLE)
     Route: 042
     Dates: start: 20230809, end: 20230920
  2. BEVACIZUMAB [Suspect]
     Active Substance: BEVACIZUMAB
     Indication: Endometrial cancer metastatic
     Dosage: 350 MILLIGRAM (START OF THERAPY 08/09/2023 - II CYCLE - THERAPY EVERY 21 DAYS ? 09/20/23 III CYCLE)
     Route: 042
     Dates: start: 20230809, end: 20230920
  3. CARBOPLATIN [Suspect]
     Active Substance: CARBOPLATIN
     Indication: Endometrial cancer metastatic
     Dosage: 320 MILLIGRAM (START OF THERAPY 08/09/2023 - II CYCLE - THERAPY EVERY 21 DAYS ? 09/20 III CYCLE)
     Route: 042
     Dates: start: 20230809, end: 20230920

REACTIONS (4)
  - Leukopenia [Recovering/Resolving]
  - Neutropenia [Recovering/Resolving]
  - Pain in extremity [Recovered/Resolved]
  - Oedema peripheral [Recovering/Resolving]

NARRATIVE: CASE EVENT DATE: 20230830
